FAERS Safety Report 9719031 (Version 4)
Quarter: 2014Q1

REPORT INFORMATION
  Report Type: Report from Study
  Country: IT (occurrence: IT)
  Receive Date: 20131127
  Receipt Date: 20140328
  Transmission Date: 20141002
  Serious: Yes (Death, Other)
  Sender: FDA-Public Use
  Company Number: IT-CELGENEUS-083-21880-13012570

PATIENT
  Sex: 0

DRUGS (8)
  1. REVLIMID [Suspect]
     Indication: PLASMA CELL MYELOMA
     Dosage: 10 MILLIGRAM
     Route: 048
     Dates: start: 200910, end: 201210
  2. REVLIMID [Suspect]
     Dosage: 25 MILLIGRAM
     Route: 048
     Dates: start: 200910, end: 201210
  3. REVLIMID [Suspect]
     Dosage: MAINTENANCE
     Route: 048
  4. MELPHALAN [Concomitant]
     Indication: PLASMA CELL MYELOMA
     Dosage: 0.18 MG/KG FOR 4 DAYS IN PTS 65-75 YEARS OLD AND 0.13 MG/KG IN }75 YEARS PTS
     Route: 048
     Dates: start: 200910, end: 201210
  5. PREDNISONE [Concomitant]
     Indication: PLASMA CELL MYELOMA
     Route: 048
     Dates: start: 200910, end: 201210
  6. PREDNISONE [Concomitant]
     Route: 048
     Dates: start: 200910, end: 201210
  7. CYCLOPHOSPHAMIDE [Concomitant]
     Indication: PLASMA CELL MYELOMA
     Dosage: 50 MG/DAY FOR 21 DAYS IN PTS 65-75 YEARS OLD AND 50 MG EVERY OTHER DAY IN }75 YEARS PTS
     Route: 048
     Dates: start: 200910, end: 201210
  8. DEXAMETHASONE [Concomitant]
     Indication: PLASMA CELL MYELOMA
     Dosage: DAYS 1,8,15 AND 22
     Route: 065
     Dates: start: 200910, end: 201210

REACTIONS (6)
  - Death [Fatal]
  - Haematotoxicity [Unknown]
  - Adverse event [Unknown]
  - Skin toxicity [Unknown]
  - Neutropenia [Unknown]
  - Infection [Unknown]
